FAERS Safety Report 25544081 (Version 1)
Quarter: 2025Q3

REPORT INFORMATION
  Report Type: Spontaneous
  Country: US (occurrence: US)
  Receive Date: 20250711
  Receipt Date: 20250711
  Transmission Date: 20251021
  Serious: No
  Sender: LUNDBECK
  Company Number: US-LUNDBECK-DKLU4016436

PATIENT
  Age: 20 Year
  Sex: Male

DRUGS (3)
  1. CLOBAZAM [Suspect]
     Active Substance: CLOBAZAM
     Indication: Seizure
  2. TOPIRAMATE [Suspect]
     Active Substance: TOPIRAMATE
     Indication: Seizure
  3. VALPROIC ACID [Suspect]
     Active Substance: VALPROIC ACID
     Indication: Seizure

REACTIONS (1)
  - Drug ineffective [Not Recovered/Not Resolved]
